FAERS Safety Report 4933661-9 (Version None)
Quarter: 2006Q1

REPORT INFORMATION
  Report Type: 
  Country: None (occurrence: None)
  Receive Date: 20060306
  Receipt Date: 20060301
  Transmission Date: 20060701
  Serious: Yes (Death, Hospitalization)
  Sender: FDA-Public Use
  Company Number: PHHO2006MX03588

PATIENT
  Age: 76 Year
  Sex: Male

DRUGS (3)
  1. ZELMAC / HTF 919A [Suspect]
     Indication: IRRITABLE BOWEL SYNDROME
     Dosage: 6 MG, UNK
     Route: 048
     Dates: start: 20051231, end: 20060130
  2. CALCORT [Concomitant]
  3. ENALAPRIL MALEATE AND HYDROCHLOROTHIAZIDE [Concomitant]

REACTIONS (5)
  - ARTHRITIS [None]
  - CONCOMITANT DISEASE PROGRESSION [None]
  - DIABETES MELLITUS [None]
  - DIARRHOEA [None]
  - HYPERTENSION [None]
